FAERS Safety Report 14946447 (Version 1)
Quarter: 2018Q2

REPORT INFORMATION
  Report Type: Spontaneous
  Country: US (occurrence: US)
  Receive Date: 20180529
  Receipt Date: 20180529
  Transmission Date: 20180711
  Serious: No
  Sender: FDA-Public Use
  Company Number: US-BRAINTREE LABORATORIES-150270-3

PATIENT
  Age: 74 Year
  Sex: Female
  Weight: 44.45 kg

DRUGS (1)
  1. PEG-3350, SODIUM CHLORIDE, SODIUM BICARBONATE AND POTASSIUM CHLORIDE F [Suspect]
     Active Substance: POLYETHYLENE GLYCOL 3350\POTASSIUM CHLORIDE\SODIUM BICARBONATE\SODIUM CHLORIDE
     Indication: COLONOSCOPY
     Dosage: ~3L
     Route: 048
     Dates: start: 20150707, end: 20150707

REACTIONS (13)
  - Lethargy [None]
  - Gastrointestinal inflammation [None]
  - Migraine [None]
  - Renal function test abnormal [None]
  - Malabsorption [None]
  - Vertigo [None]
  - Dizziness [None]
  - Pain [None]
  - Burn of internal organs [None]
  - Depression [None]
  - Weight decreased [None]
  - Asthenia [None]
  - Osteoporosis [None]

NARRATIVE: CASE EVENT DATE: 20150708
